FAERS Safety Report 10904480 (Version 2)
Quarter: 2015Q1

REPORT INFORMATION
  Report Type: Spontaneous
  Country: JP (occurrence: None)
  Receive Date: 20150306
  Receipt Date: 20150327
  Transmission Date: 20150721
  Serious: Yes (Hospitalization)
  Sender: FDA-Public Use
  Company Number: 2015BCR00035

PATIENT
  Age: 19 Year
  Sex: Male

DRUGS (7)
  1. ROCEPHIN (CEFTRIAXONE SODIUM HYDRATE) [Concomitant]
  2. RENIVACE (ENALAPRIL MALEATE) [Concomitant]
  3. ALDACTONE [Concomitant]
     Active Substance: SPIRONOLACTONE
  4. GENTACIN (GENTAMICIN SULFATE) [Concomitant]
     Active Substance: GENTAMICIN SULFATE
  5. LASIX [Concomitant]
     Active Substance: FUROSEMIDE
  6. RAPIACTA [Suspect]
     Active Substance: PERAMIVIR
     Indication: INFLUENZA
     Route: 042
     Dates: start: 20150121, end: 20150121
  7. ALOSITOL (ALLOPURINOL) (ALLOPURINOL) [Concomitant]
     Active Substance: ALLOPURINOL

REACTIONS (2)
  - Febrile neutropenia [None]
  - Agranulocytosis [None]

NARRATIVE: CASE EVENT DATE: 20150204
